FAERS Safety Report 4731528-2 (Version None)
Quarter: 2005Q3

REPORT INFORMATION
  Report Type: 
  Country: None (occurrence: None)
  Receive Date: 20050719
  Receipt Date: 20040611
  Transmission Date: 20060218
  Serious: Yes (Hospitalization)
  Sender: FDA-Public Use
  Company Number: 199762

PATIENT
  Age: 38 Year
  Sex: Male
  Weight: 117.9352 kg

DRUGS (2)
  1. AVONEX [Suspect]
     Indication: MULTIPLE SCLEROSIS
     Dosage: 30 UG;QW;IM
     Dates: start: 20040511, end: 20040518
  2. SERZONE [Concomitant]

REACTIONS (7)
  - ANOREXIA [None]
  - ASTHENIA [None]
  - INFLUENZA LIKE ILLNESS [None]
  - LIVER FUNCTION TEST ABNORMAL [None]
  - PAIN [None]
  - PYREXIA [None]
  - WEIGHT DECREASED [None]
